FAERS Safety Report 20423672 (Version 1)
Quarter: 2022Q1

REPORT INFORMATION
  Report Type: Spontaneous
  Country: US (occurrence: US)
  Receive Date: 20220203
  Receipt Date: 20220203
  Transmission Date: 20220424
  Serious: No
  Sender: FDA-Public Use
  Company Number: US-THE RITEDOSE CORPORATION-2021RIT000247

PATIENT

DRUGS (1)
  1. ALBUTEROL SULFATE [Suspect]
     Active Substance: ALBUTEROL SULFATE
     Indication: Asthma
     Dosage: 0.083 %, BID, AS NEEDED
     Route: 055

REACTIONS (4)
  - Visual impairment [Unknown]
  - Overweight [Unknown]
  - Drug ineffective [Unknown]
  - Expired product administered [Unknown]
